FAERS Safety Report 7269498-8 (Version None)
Quarter: 2011Q1

REPORT INFORMATION
  Report Type: 
  Country: None (occurrence: None)
  Receive Date: 20110202
  Receipt Date: 20101217
  Transmission Date: 20110831
  Serious: Yes (Hospitalization, Other)
  Sender: FDA-Public Use
  Company Number: US-BAYER-201013585NA

PATIENT
  Sex: Female

DRUGS (4)
  1. YAZ [Suspect]
     Indication: PRODUCT USED FOR UNKNOWN INDICATION
     Route: 048
     Dates: start: 20070201
  2. BUSPAR [Concomitant]
     Dosage: 10 MG, UNK
  3. YASMIN [Suspect]
  4. XANAX XR [Concomitant]
     Dosage: 0.25 MG,

REACTIONS (5)
  - ABDOMINAL PAIN [None]
  - PANIC ATTACK [None]
  - HEART INJURY [None]
  - NAUSEA [None]
  - DEPRESSION [None]
